FAERS Safety Report 8447945 (Version 2)
Quarter: 2014Q2

REPORT INFORMATION
  Report Type: Report from Study
  Country: RU (occurrence: RU)
  Receive Date: 20120308
  Receipt Date: 20140606
  Transmission Date: 20141212
  Serious: Yes (Death, Hospitalization, Other)
  Sender: FDA-Public Use
  Company Number: RU-CELGENEUS-251-50794-12030168

PATIENT
  Age: 65 Year
  Sex: Male
  Weight: 64 kg

DRUGS (1)
  1. VIDAZA [Suspect]
     Indication: ACUTE MYELOID LEUKAEMIA
     Dosage: 135 MILLIGRAM
     Route: 065
     Dates: start: 20110419, end: 20110425

REACTIONS (3)
  - Cardiac failure acute [Fatal]
  - Anaemia [Not Recovered/Not Resolved]
  - Sepsis [Fatal]
